FAERS Safety Report 19444403 (Version 1)
Quarter: 2021Q2

REPORT INFORMATION
  Report Type: Report from Study
  Country: None (occurrence: GB)
  Receive Date: 20210621
  Receipt Date: 20210621
  Transmission Date: 20210717
  Serious: Yes (Other)
  Sender: FDA-Public Use
  Company Number: GB-ABBVIE-21K-167-3934474-00

PATIENT
  Age: 36 Year
  Sex: Male

DRUGS (1)
  1. SKYRIZI [Suspect]
     Active Substance: RISANKIZUMAB-RZAA
     Indication: PSORIASIS
     Route: 058
     Dates: end: 202012

REACTIONS (4)
  - Pyrexia [Recovered/Resolved]
  - Tooth extraction [Unknown]
  - Psoriasis [Unknown]
  - Dental operation [Unknown]

NARRATIVE: CASE EVENT DATE: 2021
